FAERS Safety Report 4618516-1 (Version None)
Quarter: 2005Q2

REPORT INFORMATION
  Report Type: 
  Country: None (occurrence: None)
  Receive Date: 20050311
  Receipt Date: 20041102
  Transmission Date: 20051028
  Serious: No
  Sender: FDA-Public Use
  Company Number: 2004-BP-10649BP

PATIENT
  Age: 62 Year
  Sex: Female

DRUGS (11)
  1. SPIRIVA [Suspect]
     Indication: ASTHMA
     Dosage: 18 MCG (18 MCG), IH
     Route: 055
     Dates: start: 20041012, end: 20041014
  2. SPIRIVA [Suspect]
  3. ALBUTEROL [Concomitant]
  4. HALLS COUGH DROPS [Concomitant]
  5. GLUCOPHAGE [Concomitant]
  6. STARLIX [Concomitant]
  7. LISINOPRIL [Concomitant]
  8. ATENOLOL [Concomitant]
  9. MICRO-K 10 [Concomitant]
  10. BIAXIN [Concomitant]
  11. CELEBREX [Concomitant]

REACTIONS (1)
  - DRUG INEFFECTIVE [None]
